FAERS Safety Report 10689314 (Version 1)
Quarter: 2015Q1

REPORT INFORMATION
  Report Type: Spontaneous
  Country: US (occurrence: US)
  Receive Date: 20150105
  Receipt Date: 20150105
  Transmission Date: 20150720
  Serious: Yes (Other)
  Sender: FDA-Public Use
  Company Number: US-ACCORD-027919

PATIENT
  Age: 69 Year
  Sex: Female

DRUGS (5)
  1. CLONAZEPAM. [Suspect]
     Active Substance: CLONAZEPAM
     Indication: EPILEPSY
  2. LEVETIRACETAM. [Suspect]
     Active Substance: LEVETIRACETAM
     Indication: EPILEPSY
  3. CLOBAZAM [Suspect]
     Active Substance: CLOBAZAM
     Indication: EPILEPSY
     Dosage: 10MG/DAY
  4. NO DRUG NAME [Suspect]
     Active Substance: UNSPECIFIED INGREDIENT
     Indication: EPILEPSY
  5. VALPROATE [Suspect]
     Active Substance: VALPROATE SODIUM
     Indication: EPILEPSY

REACTIONS (10)
  - Tremor [Unknown]
  - Somnolence [Unknown]
  - Anger [Unknown]
  - Dizziness [Unknown]
  - Confusional state [Unknown]
  - Seizure [Recovered/Resolved]
  - Mood altered [Unknown]
  - Balance disorder [Recovered/Resolved]
  - Anxiety [Unknown]
  - Drug intolerance [Unknown]
